FAERS Safety Report 9695614 (Version 3)
Quarter: 2014Q1

REPORT INFORMATION
  Report Type: Spontaneous
  Country: US (occurrence: US)
  Receive Date: 20131119
  Receipt Date: 20140303
  Transmission Date: 20141002
  Serious: Yes (Other)
  Sender: FDA-Public Use
  Company Number: US-JNJFOC-20131107186

PATIENT
  Sex: Female
  Weight: 94.8 kg

DRUGS (2)
  1. XARELTO [Suspect]
     Indication: THROMBOSIS PROPHYLAXIS
     Route: 048
     Dates: start: 201304
  2. CORTISONE [Concomitant]
     Indication: ARTHRITIS
     Route: 065

REACTIONS (12)
  - Thrombosis [Recovered/Resolved]
  - Blood blister [Not Recovered/Not Resolved]
  - Weight decreased [Unknown]
  - Rash [Unknown]
  - Agitation [Unknown]
  - Pruritus [Unknown]
  - Dry skin [Unknown]
  - Rash [Unknown]
  - Solar lentigo [Unknown]
  - Rash [Unknown]
  - Rash [Unknown]
  - Muscular weakness [Unknown]
